FAERS Safety Report 12958461 (Version 1)
Quarter: 2016Q4

REPORT INFORMATION
  Report Type: Spontaneous
  Country: US (occurrence: US)
  Receive Date: 20161121
  Receipt Date: 20161121
  Transmission Date: 20170207
  Serious: Yes (Other)
  Sender: FDA-Public Use
  Company Number: US-TEVA-697313USA

PATIENT
  Sex: Female

DRUGS (1)
  1. DIAZEPAM. [Suspect]
     Active Substance: DIAZEPAM
     Indication: ANXIETY

REACTIONS (4)
  - Delusion [Unknown]
  - Intentional product misuse [Unknown]
  - Inappropriate schedule of drug administration [Unknown]
  - Drug dependence [Unknown]
